FAERS Safety Report 8854439 (Version 1)
Quarter: 2012Q4

REPORT INFORMATION
  Report Type: Spontaneous
  Country: US (occurrence: None)
  Receive Date: 20121022
  Receipt Date: 20121022
  Transmission Date: 20130627
  Serious: No
  Sender: FDA-Public Use
  Company Number: None

PATIENT
  Age: 13 Year
  Sex: Male
  Weight: 64.86 kg

DRUGS (1)
  1. SAIZEN [Suspect]
     Indication: GROWTH HORMONE DECREASED
     Dates: start: 20120901, end: 20121020

REACTIONS (6)
  - Headache [None]
  - Bone pain [None]
  - Vomiting [None]
  - Fluid retention [None]
  - Pyrexia [None]
  - Mood altered [None]
